FAERS Safety Report 8110510-1 (Version None)
Quarter: 2012Q1

REPORT INFORMATION
  Report Type: 
  Country: None (occurrence: None)
  Receive Date: 20120202
  Receipt Date: 20111130
  Transmission Date: 20120608
  Serious: Yes (Hospitalization)
  Sender: FDA-Public Use
  Company Number: PHHY2011KR105586

PATIENT
  Sex: Female

DRUGS (1)
  1. EXJADE [Suspect]
     Indication: IRON OVERLOAD
     Dosage: 1000 MG/DAY
     Route: 048
     Dates: start: 20080101

REACTIONS (3)
  - LOWER LIMB FRACTURE [None]
  - FEMUR FRACTURE [None]
  - LIVER FUNCTION TEST ABNORMAL [None]
